FAERS Safety Report 15160442 (Version 3)
Quarter: 2020Q1

REPORT INFORMATION
  Report Type: Spontaneous
  Country: CA (occurrence: CA)
  Receive Date: 20180718
  Receipt Date: 20200207
  Transmission Date: 20200409
  Serious: Yes (Death, Hospitalization)
  Sender: FDA-Public Use
  Company Number: CA-ACTELION-A-NJ2018-175465

PATIENT
  Age: 80 Year
  Sex: Male

DRUGS (12)
  1. LASIX [Concomitant]
     Active Substance: FUROSEMIDE
  2. COLACE [Concomitant]
     Active Substance: DOCUSATE SODIUM
  3. OPSUMIT [Suspect]
     Active Substance: MACITENTAN
     Indication: PULMONARY ARTERIAL HYPERTENSION
     Dosage: 10 MG, QD
     Route: 048
     Dates: start: 20160825
  4. DILTIAZEM. [Concomitant]
     Active Substance: DILTIAZEM
  5. MYCOPHENOLIC ACID. [Concomitant]
     Active Substance: MYCOPHENOLIC ACID
  6. SERAX [Concomitant]
     Active Substance: OXAZEPAM
  7. ADCIRCA [Concomitant]
     Active Substance: TADALAFIL
  8. GLYBURIDE. [Concomitant]
     Active Substance: GLYBURIDE
  9. PENTOXIFYLLINE. [Concomitant]
     Active Substance: PENTOXIFYLLINE
  10. PREDNISONE. [Concomitant]
     Active Substance: PREDNISONE
  11. PANTOPRAZOLE [Concomitant]
     Active Substance: PANTOPRAZOLE
  12. ASA [Concomitant]
     Active Substance: ASPIRIN

REACTIONS (2)
  - Death [Fatal]
  - Pneumonia [Recovering/Resolving]

NARRATIVE: CASE EVENT DATE: 20180708
